FAERS Safety Report 5374785-4 (Version None)
Quarter: 2007Q2

REPORT INFORMATION
  Report Type: 
  Country: None (occurrence: None)
  Receive Date: 20070629
  Receipt Date: 20070619
  Transmission Date: 20071010
  Serious: Yes (Hospitalization)
  Sender: FDA-Public Use
  Company Number: JP-ROCHE-499403

PATIENT
  Age: 25 Year
  Sex: Female

DRUGS (3)
  1. ROCEPHIN [Suspect]
     Indication: ACUTE TONSILLITIS
     Route: 041
     Dates: start: 20070515, end: 20070515
  2. DALACIN S [Concomitant]
     Route: 041
     Dates: start: 20070515
  3. DECADRON [Concomitant]
     Dosage: ROUTE REPORTED AS INJECTABLE (NOT OTHERWISE SPECIFIED).
     Route: 050
     Dates: start: 20070515, end: 20070515

REACTIONS (1)
  - ANAPHYLACTIC REACTION [None]
